FAERS Safety Report 22596796 (Version 1)
Quarter: 2023Q2

REPORT INFORMATION
  Report Type: Spontaneous
  Country: FR (occurrence: FR)
  Receive Date: 20230613
  Receipt Date: 20230613
  Transmission Date: 20230721
  Serious: Yes (Hospitalization)
  Sender: FDA-Public Use
  Company Number: None

PATIENT
  Age: 50 Year
  Sex: Male

DRUGS (7)
  1. OXALIPLATIN [Suspect]
     Active Substance: OXALIPLATIN
     Indication: Oesophageal adenocarcinoma
     Route: 042
     Dates: start: 20230419, end: 20230419
  2. FLUOROURACIL [Suspect]
     Active Substance: FLUOROURACIL
     Indication: Oesophageal adenocarcinoma
     Route: 042
     Dates: start: 20230419, end: 20230419
  3. NIVOLUMAB [Suspect]
     Active Substance: NIVOLUMAB
     Indication: Oesophageal adenocarcinoma
     Route: 042
     Dates: start: 20230419, end: 20230419
  4. ACETAMINOPHEN [Concomitant]
     Active Substance: ACETAMINOPHEN
     Indication: Product used for unknown indication
     Route: 048
     Dates: start: 20230405
  5. PRIMPERAN 10 mg, breakable tablet [Concomitant]
     Route: 048
     Dates: start: 20230405
  6. LEUCOVORIN [Concomitant]
     Active Substance: LEUCOVORIN
     Indication: Oesophageal adenocarcinoma
     Route: 042
     Dates: start: 20230419, end: 20230419
  7. IMODIUM 2 mg, capsule [Concomitant]
     Indication: Product used for unknown indication
     Dosage: MAXIMUM
     Route: 048
     Dates: start: 20230405

REACTIONS (3)
  - Renal failure [Recovered/Resolved]
  - Colitis [Recovering/Resolving]
  - Transaminases increased [Recovered/Resolved]

NARRATIVE: CASE EVENT DATE: 20230424
